FAERS Safety Report 8921724 (Version 1)
Quarter: 2012Q4

REPORT INFORMATION
  Report Type: Report from Study
  Country: IT (occurrence: IT)
  Receive Date: 20121121
  Receipt Date: 20121121
  Transmission Date: 20130627
  Serious: Yes (Hospitalization)
  Sender: FDA-Public Use
  Company Number: IT-ASTRAZENECA-2012SE32211

PATIENT
  Age: 78 Year
  Sex: Female
  Weight: 51 kg

DRUGS (2)
  1. ZD6474 [Suspect]
     Indication: BILIARY CANCER METASTATIC
     Route: 048
     Dates: start: 20111116, end: 20120509
  2. GEMCITABINE [Suspect]
     Indication: BILIARY CANCER METASTATIC
     Dosage: 1450 MG OVER 30 MINUTES ON DAYS 1 AND 8 OF EACH 21-DAY CYCLE
     Route: 042
     Dates: start: 20111116, end: 20120502

REACTIONS (4)
  - Renal failure [Not Recovered/Not Resolved]
  - Anaemia [Recovered/Resolved]
  - Neutropenia [Recovered/Resolved]
  - Thrombocytopenia [Recovered/Resolved]
